FAERS Safety Report 18489964 (Version 3)
Quarter: 2021Q1

REPORT INFORMATION
  Report Type: Spontaneous
  Country: US (occurrence: US)
  Receive Date: 20201111
  Receipt Date: 20210107
  Transmission Date: 20210419
  Serious: No
  Sender: FDA-Public Use
  Company Number: US-MYLANLABS-2020M1092781

PATIENT
  Sex: Female
  Weight: 59 kg

DRUGS (2)
  1. LEVOTHYROXINE SODIUM TABLETS, USP [Suspect]
     Active Substance: LEVOTHYROXINE SODIUM
     Indication: THYROID HORMONE REPLACEMENT THERAPY
     Dosage: 150 MICROGRAM, ONCE DAILY 6 DAYS A WEEK
     Route: 048
     Dates: end: 20200922
  2. CLARITIN                           /00984601/ [Concomitant]
     Indication: HYPERSENSITIVITY
     Dosage: UNK

REACTIONS (1)
  - Blood thyroid stimulating hormone decreased [Unknown]
